FAERS Safety Report 26165365 (Version 1)
Quarter: 2025Q4

REPORT INFORMATION
  Report Type: Spontaneous
  Country: US (occurrence: None)
  Receive Date: 20251216
  Receipt Date: 20251216
  Transmission Date: 20260118
  Serious: Yes (Other)
  Sender: FDA-CTU
  Company Number: None

PATIENT
  Age: 50 Year
  Sex: Male
  Weight: 81 kg

DRUGS (1)
  1. DUPIXENT [Suspect]
     Active Substance: DUPILUMAB
     Indication: Dermatitis atopic
     Dosage: 300 MG/2ML EVERY TWO WEEKS SUBCUTANEOUS
     Route: 058
     Dates: start: 20250325, end: 20250408

REACTIONS (2)
  - Laryngeal squamous cell carcinoma [None]
  - Candida infection [None]

NARRATIVE: CASE EVENT DATE: 20250520
